FAERS Safety Report 18000878 (Version 2)
Quarter: 2020Q3

REPORT INFORMATION
  Report Type: Spontaneous
  Country: US (occurrence: US)
  Receive Date: 20200709
  Receipt Date: 20200722
  Transmission Date: 20201103
  Serious: No
  Sender: FDA-Public Use
  Company Number: US-MYLANLABS-2020M1059908

PATIENT
  Sex: Female
  Weight: 66 kg

DRUGS (8)
  1. FENOFIBRATE TABLETS, USP [Suspect]
     Active Substance: FENOFIBRATE
     Indication: BLOOD TRIGLYCERIDES INCREASED
     Dosage: ONCE PER DAY
     Route: 048
     Dates: start: 20200225, end: 2020
  2. ASPIRIN                            /00002701/ [Concomitant]
     Active Substance: ASPIRIN
     Dosage: UNK
  3. LISINOPRIL                         /00894002/ [Concomitant]
     Active Substance: LISINOPRIL
     Dosage: UNK
  4. ACYCLOVIR                          /00587301/ [Suspect]
     Active Substance: ACYCLOVIR
     Indication: ORAL HERPES
     Dosage: ONCE A DAY AS NEEDED FOR BREAK?OUT
     Route: 048
     Dates: start: 202002
  5. FENOFIBRATE TABLETS, USP [Suspect]
     Active Substance: FENOFIBRATE
     Indication: HYPERCHOLESTEROLAEMIA
  6. ROSUVASTATIN                       /01588602/ [Concomitant]
     Active Substance: ROSUVASTATIN CALCIUM
     Dosage: UNK
  7. OMEPRAZOLE                         /00661202/ [Concomitant]
     Active Substance: OMEPRAZOLE SODIUM
     Dosage: UNK
  8. METOPROLOL                         /00376902/ [Concomitant]
     Active Substance: METOPROLOL TARTRATE
     Dosage: UNK

REACTIONS (1)
  - Alopecia [Recovered/Resolved]

NARRATIVE: CASE EVENT DATE: 2020
